FAERS Safety Report 21381227 (Version 2)
Quarter: 2022Q4

REPORT INFORMATION
  Report Type: Report from Study
  Country: IT (occurrence: IT)
  Receive Date: 20220927
  Receipt Date: 20221004
  Transmission Date: 20230113
  Serious: Yes (Death)
  Sender: FDA-Public Use
  Company Number: IT-DSJP-DSU-2022-133780

PATIENT

DRUGS (10)
  1. ENHERTU [Suspect]
     Active Substance: FAM-TRASTUZUMAB DERUXTECAN-NXKI
     Indication: HER2 positive breast cancer
     Dosage: 510 MG, ONCE EVERY 3 WK
     Route: 042
  2. ENHERTU [Suspect]
     Active Substance: FAM-TRASTUZUMAB DERUXTECAN-NXKI
     Dosage: 410 MG, ONCE EVERY 3 WK
     Route: 042
     Dates: start: 20220203, end: 20220707
  3. DEXAMETHASONE [Concomitant]
     Active Substance: DEXAMETHASONE
     Indication: Epilepsy
     Dosage: 64 DF, QD, 64 DROPS
     Route: 048
     Dates: end: 20220913
  4. RIVOTRIL [Concomitant]
     Active Substance: CLONAZEPAM
     Indication: Epilepsy
     Dosage: 16 DF, TID, DIVIDED INTO TID
     Route: 048
     Dates: end: 20220913
  5. KEPPRA [Concomitant]
     Active Substance: LEVETIRACETAM
     Indication: Epilepsy
     Dosage: 1 G, BID
     Route: 048
     Dates: end: 20220913
  6. LANSOPRAZOLE [Concomitant]
     Active Substance: LANSOPRAZOLE
     Indication: Gastrointestinal disorder prophylaxis
     Dosage: 30 MG, QD
     Route: 048
     Dates: end: 20220913
  7. ENALAPRIL/LERCANIDIPIN [Concomitant]
     Indication: Hypertension
     Dosage: 20 MG/10 MG, QD
     Route: 048
  8. CHOLECALCIFEROL [Concomitant]
     Active Substance: CHOLECALCIFEROL
     Indication: Nutritional supplementation
     Dosage: 100000 IU, ONCE EVERY 1 MO
     Route: 048
     Dates: end: 20220913
  9. ASPIRIN [Concomitant]
     Active Substance: ASPIRIN
     Indication: Pain
     Dosage: 100 MG, QD
     Route: 048
     Dates: end: 20220913
  10. VIMPAT [Concomitant]
     Active Substance: LACOSAMIDE
     Indication: Epilepsy
     Dosage: 50 MG, BID
     Route: 048
     Dates: end: 20220913

REACTIONS (5)
  - Campylobacter infection [Fatal]
  - Hepatic failure [Fatal]
  - Intestinal obstruction [Fatal]
  - Hyponatraemia [Fatal]
  - Weight decreased [Unknown]

NARRATIVE: CASE EVENT DATE: 20220701
